FAERS Safety Report 8355235-2 (Version None)
Quarter: 2012Q2

REPORT INFORMATION
  Report Type: 
  Country: None (occurrence: None)
  Receive Date: 20120511
  Receipt Date: 20110520
  Transmission Date: 20120825
  Serious: No
  Sender: FDA-Public Use
  Company Number: US-TEVA-2011002533

PATIENT
  Sex: Male
  Weight: 68.1 kg

DRUGS (2)
  1. NUVIGIL [Suspect]
     Indication: SLEEP DISORDER
     Dosage: 250 MILLIGRAM;
     Route: 048
     Dates: start: 20080101
  2. SUBOXONE [Concomitant]
     Dates: start: 20100101

REACTIONS (1)
  - DRUG INEFFECTIVE [None]
